FAERS Safety Report 4868404-0 (Version None)
Quarter: 2005Q4

REPORT INFORMATION
  Report Type: 
  Country: None (occurrence: None)
  Receive Date: 20051229
  Receipt Date: 20051222
  Transmission Date: 20060501
  Serious: Yes (Hospitalization)
  Sender: FDA-Public Use
  Company Number: CH-GLAXOSMITHKLINE-B0404774A

PATIENT
  Age: 41 Year
  Sex: Female

DRUGS (2)
  1. AUGMENTIN '125' [Suspect]
     Indication: URINARY TRACT INFECTION
     Route: 048
     Dates: start: 20050909, end: 20050916
  2. CIPROFLOXACIN [Suspect]
     Indication: URINARY TRACT INFECTION
     Route: 048
     Dates: start: 20050909, end: 20050914

REACTIONS (4)
  - DERMATITIS EXFOLIATIVE [None]
  - LYMPHOEDEMA [None]
  - PYREXIA [None]
  - TACHYCARDIA [None]
